FAERS Safety Report 6062977-0 (Version None)
Quarter: 2009Q1

REPORT INFORMATION
  Report Type: 
  Country: None (occurrence: None)
  Receive Date: 20090203
  Receipt Date: 20090128
  Transmission Date: 20090719
  Serious: Yes (Congenital Anomaly, Other)
  Sender: FDA-Public Use
  Company Number: B0551641A

PATIENT

DRUGS (2)
  1. LAMOTRIGINE [Suspect]
     Indication: EPILEPSY
     Dosage: 500MG PER DAY
  2. FOLIC ACID [Suspect]

REACTIONS (3)
  - ASPERGER'S DISORDER [None]
  - AUTISM SPECTRUM DISORDER [None]
  - DRUG EXPOSURE DURING PREGNANCY [None]
